FAERS Safety Report 9782019 (Version 2)
Quarter: 2013Q4

REPORT INFORMATION
  Report Type: Spontaneous
  Country: US (occurrence: US)
  Receive Date: 20131225
  Receipt Date: 20131225
  Transmission Date: 20140711
  Serious: Yes (Other)
  Sender: FDA-Public Use
  Company Number: US-GE HEALTHCARE MEDICAL DIAGNOSTICS-OSCN-PR-1201S-0005

PATIENT
  Age: 60 Year
  Sex: Female

DRUGS (4)
  1. OMNISCAN [Suspect]
     Indication: RENAL ARTERY STENOSIS
     Dates: start: 20020722, end: 20020722
  2. OMNISCAN [Suspect]
     Indication: CEREBRAL HAEMORRHAGE
     Dates: start: 20020731, end: 20020731
  3. OMNISCAN [Suspect]
     Indication: CONVULSION
     Dates: start: 20051026, end: 20051026
  4. OMNISCAN [Suspect]
     Indication: CEREBROVASCULAR ACCIDENT
     Dates: start: 20021228, end: 20021228

REACTIONS (1)
  - Nephrogenic systemic fibrosis [Not Recovered/Not Resolved]
